FAERS Safety Report 13371219 (Version 1)
Quarter: 2017Q1

REPORT INFORMATION
  Report Type: Report from Study
  Country: US (occurrence: BR)
  Receive Date: 20170324
  Receipt Date: 20170324
  Transmission Date: 20170429
  Serious: Yes (Hospitalization, Other)
  Sender: FDA-Public Use
  Company Number: US-SUNOVION-2017SUN001234

PATIENT
  Sex: Female

DRUGS (4)
  1. INDACATEROL AND GLYCOPYRROLATE [Suspect]
     Active Substance: GLYCOPYRROLATE\INDACATEROL MALEATE
     Indication: EMPHYSEMA
     Dosage: UNKNOWN
     Route: 055
  2. CORTICOSTEROID NOS [Concomitant]
     Active Substance: CORTICOSTEROID NOS
  3. AVAMYS [Concomitant]
     Active Substance: FLUTICASONE FUROATE
  4. MARESIS [Concomitant]

REACTIONS (16)
  - Emphysema [Unknown]
  - Snoring [Unknown]
  - Chills [Unknown]
  - Weight increased [Unknown]
  - Irritability [Unknown]
  - Swelling [Unknown]
  - Dyspnoea [Unknown]
  - Pain [Unknown]
  - Dry mouth [Unknown]
  - Malaise [Unknown]
  - Weight decreased [Unknown]
  - Diabetes mellitus [Unknown]
  - Pneumonia [Unknown]
  - Condition aggravated [Unknown]
  - Feeling abnormal [Unknown]
  - Nasal obstruction [Unknown]
